FAERS Safety Report 13605346 (Version 1)
Quarter: 2017Q2

REPORT INFORMATION
  Report Type: Report from Study
  Country: DE (occurrence: DE)
  Receive Date: 20170602
  Receipt Date: 20170602
  Transmission Date: 20170830
  Serious: Yes (Death)
  Sender: FDA-Public Use
  Company Number: DE-VIFOR (INTERNATIONAL) INC.-VIT-2017-05770

PATIENT
  Age: 65 Year
  Sex: Male
  Weight: 82 kg

DRUGS (6)
  1. ACETYLSALICYLIC ACID [Concomitant]
     Active Substance: ASPIRIN
     Indication: HYPERTENSION
     Dates: start: 20160815
  2. RENVELA [Concomitant]
     Active Substance: SEVELAMER CARBONATE
     Indication: HYPERPHOSPHATAEMIA
     Dates: start: 20140131, end: 20160906
  3. EPOETIN ZETA [Concomitant]
     Active Substance: ERYTHROPOIETIN
     Indication: NEPHROGENIC ANAEMIA
     Dates: start: 20160217
  4. VELPHORO [Suspect]
     Active Substance: FERRIC OXYHYDROXIDE
     Indication: HYPERPHOSPHATAEMIA
     Route: 048
     Dates: start: 20160907, end: 20170329
  5. FERRELECIT [Concomitant]
     Indication: NEPHROGENIC ANAEMIA
     Dates: start: 20100427
  6. PANTOZOL [Concomitant]
     Active Substance: PANTOPRAZOLE SODIUM
     Indication: PROPHYLAXIS
     Dates: start: 20160503

REACTIONS (1)
  - Death [Fatal]

NARRATIVE: CASE EVENT DATE: 20170329
